FAERS Safety Report 5628569-X (Version None)
Quarter: 2008Q1

REPORT INFORMATION
  Report Type: 
  Country: None (occurrence: None)
  Receive Date: 20080215
  Receipt Date: 20080213
  Transmission Date: 20080703
  Serious: Yes (Hospitalization)
  Sender: FDA-Public Use
  Company Number: US-MERCK-0801USA03513

PATIENT
  Age: 61 Year
  Sex: Male

DRUGS (6)
  1. VYTORIN [Suspect]
     Indication: HYPERCHOLESTEROLAEMIA
     Route: 048
     Dates: start: 20050601
  2. CARVEDILOL [Concomitant]
     Route: 065
  3. PRINIVIL [Concomitant]
     Route: 048
  4. HYDRODIURIL [Concomitant]
     Route: 048
  5. NIACIN [Concomitant]
     Route: 065
  6. ASPIRIN [Concomitant]
     Route: 065

REACTIONS (4)
  - ARTHRITIS [None]
  - ASTHENIA [None]
  - BACK PAIN [None]
  - CAROTID ARTERY STENOSIS [None]
